FAERS Safety Report 24588511 (Version 2)
Quarter: 2024Q4

REPORT INFORMATION
  Report Type: Report from Study
  Country: US (occurrence: US)
  Receive Date: 20241107
  Receipt Date: 20241212
  Transmission Date: 20250115
  Serious: No
  Sender: SANDOZ
  Company Number: US-SANDOZ-SDZ2024US093087

PATIENT
  Sex: Female

DRUGS (1)
  1. HYRIMOZ [Suspect]
     Active Substance: ADALIMUMAB-ADAZ
     Indication: Product used for unknown indication
     Dosage: 40 MG N/A DOSE EVERY N/A N/A, SUSPENSION
     Route: 058

REACTIONS (3)
  - Mydriasis [Unknown]
  - Pain [Unknown]
  - Drug ineffective [Unknown]
